FAERS Safety Report 20726532 (Version 1)
Quarter: 2022Q2

REPORT INFORMATION
  Report Type: Spontaneous
  Country: US (occurrence: US)
  Receive Date: 20220419
  Receipt Date: 20220419
  Transmission Date: 20220721
  Serious: Yes (Other)
  Sender: FDA-Public Use
  Company Number: US-JAZZ-2021-US-020513

PATIENT
  Age: 30 Year
  Sex: Male

DRUGS (1)
  1. XYREM [Suspect]
     Active Substance: SODIUM OXYBATE
     Indication: Product used for unknown indication
     Dosage: UNKNOWN DOSE AND FREQUENCY
     Route: 048

REACTIONS (6)
  - Suicide attempt [Unknown]
  - Depressed level of consciousness [Unknown]
  - Tachypnoea [Unknown]
  - Nystagmus [Unknown]
  - Nausea [Unknown]
  - Vomiting [Unknown]
